FAERS Safety Report 23415649 (Version 3)
Quarter: 2024Q1

REPORT INFORMATION
  Report Type: Spontaneous
  Country: US (occurrence: US)
  Receive Date: 20240118
  Receipt Date: 20240216
  Transmission Date: 20240410
  Serious: Yes (Other)
  Sender: FDA-Public Use
  Company Number: US-ALK-ABELLO A/S-2023AA004743

PATIENT

DRUGS (33)
  1. QUERCUS ALBA POLLEN [Suspect]
     Active Substance: QUERCUS ALBA POLLEN
     Indication: Rhinitis allergic
     Dosage: UNK
     Route: 058
  2. QUERCUS ALBA POLLEN [Suspect]
     Active Substance: QUERCUS ALBA POLLEN
     Dosage: UNK
     Route: 058
     Dates: start: 20231205
  3. ACER SACCHARUM POLLEN [Suspect]
     Active Substance: ACER SACCHARUM POLLEN
     Indication: Rhinitis allergic
     Dosage: UNK
     Route: 058
  4. ACER SACCHARUM POLLEN [Suspect]
     Active Substance: ACER SACCHARUM POLLEN
     Dosage: UNK
     Route: 058
     Dates: start: 20231205
  5. ACER NEGUNDO POLLEN [Suspect]
     Active Substance: ACER NEGUNDO POLLEN
     Indication: Rhinitis allergic
     Dosage: UNK
     Route: 058
  6. ACER NEGUNDO POLLEN [Suspect]
     Active Substance: ACER NEGUNDO POLLEN
     Dosage: UNK
     Route: 058
     Dates: start: 20231205
  7. DERMATOPHAGOIDES PTERONYSSINUS [Suspect]
     Active Substance: DERMATOPHAGOIDES PTERONYSSINUS
     Indication: Rhinitis allergic
     Route: 058
  8. DERMATOPHAGOIDES PTERONYSSINUS [Suspect]
     Active Substance: DERMATOPHAGOIDES PTERONYSSINUS
     Dosage: UNK
     Route: 058
     Dates: start: 20231205
  9. DERMATOPHAGOIDES FARINAE [Suspect]
     Active Substance: DERMATOPHAGOIDES FARINAE
     Indication: Rhinitis allergic
     Dosage: UNK
     Route: 058
  10. DERMATOPHAGOIDES FARINAE [Suspect]
     Active Substance: DERMATOPHAGOIDES FARINAE
     Dosage: UNK
     Route: 058
     Dates: start: 20231205
  11. ARTEMISIA VULGARIS POLLEN [Suspect]
     Active Substance: ARTEMISIA VULGARIS POLLEN
     Indication: Rhinitis allergic
     Dosage: UNK
  12. ARTEMISIA VULGARIS POLLEN [Suspect]
     Active Substance: ARTEMISIA VULGARIS POLLEN
     Dosage: UNK
     Dates: start: 20231205
  13. AMARANTHUS RETROFLEXUS POLLEN [Suspect]
     Active Substance: AMARANTHUS RETROFLEXUS POLLEN
     Indication: Rhinitis allergic
  14. AMARANTHUS RETROFLEXUS POLLEN [Suspect]
     Active Substance: AMARANTHUS RETROFLEXUS POLLEN
     Dosage: UNK
     Dates: start: 20231205
  15. PLANTAGO LANCEOLATA POLLEN [Suspect]
     Active Substance: PLANTAGO LANCEOLATA POLLEN
     Indication: Rhinitis allergic
  16. PLANTAGO LANCEOLATA POLLEN [Suspect]
     Active Substance: PLANTAGO LANCEOLATA POLLEN
     Dosage: UNK
     Dates: start: 20231205
  17. RUMEX ACETOSELLA POLLEN [Suspect]
     Active Substance: RUMEX ACETOSELLA POLLEN
     Indication: Rhinitis allergic
  18. RUMEX ACETOSELLA POLLEN [Suspect]
     Active Substance: RUMEX ACETOSELLA POLLEN
     Dosage: UNK
     Dates: start: 20231205
  19. POPULUS DELTOIDES POLLEN [Suspect]
     Active Substance: POPULUS DELTOIDES POLLEN
     Indication: Rhinitis allergic
  20. POPULUS DELTOIDES POLLEN [Suspect]
     Active Substance: POPULUS DELTOIDES POLLEN
     Dosage: UNK
     Dates: start: 20231205
  21. ULMUS AMERICANA POLLEN [Suspect]
     Active Substance: ULMUS AMERICANA POLLEN
     Indication: Rhinitis allergic
  22. ULMUS AMERICANA POLLEN [Suspect]
     Active Substance: ULMUS AMERICANA POLLEN
     Dosage: UNK
     Dates: start: 20231205
  23. CARYA OVATA POLLEN [Suspect]
     Active Substance: CARYA OVATA POLLEN
     Indication: Rhinitis allergic
     Dosage: UNK
  24. CARYA OVATA POLLEN [Suspect]
     Active Substance: CARYA OVATA POLLEN
     Dosage: UNK
     Dates: start: 20231205
  25. MORUS RUBRA POLLEN [Suspect]
     Active Substance: MORUS RUBRA POLLEN
     Indication: Rhinitis allergic
  26. MORUS RUBRA POLLEN [Suspect]
     Active Substance: MORUS RUBRA POLLEN
     Dosage: UNK
     Dates: start: 20231205
  27. PLATANUS OCCIDENTALIS POLLEN [Suspect]
     Active Substance: PLATANUS OCCIDENTALIS POLLEN
     Indication: Rhinitis allergic
  28. PLATANUS OCCIDENTALIS POLLEN [Suspect]
     Active Substance: PLATANUS OCCIDENTALIS POLLEN
     Dosage: UNK
     Dates: start: 20231205
  29. BETULA PENDULA POLLEN [Suspect]
     Active Substance: BETULA PENDULA POLLEN
     Indication: Rhinitis allergic
     Dosage: UNK
  30. BETULA PENDULA POLLEN [Suspect]
     Active Substance: BETULA PENDULA POLLEN
     Dosage: UNK
     Dates: start: 20231205
  31. STERILE DILUENT FOR ALLERGENIC EXTRACT NOS [Suspect]
     Active Substance: ALBUMIN HUMAN OR GLYCERIN OR PHENOL
     Indication: Rhinitis allergic
     Dosage: UNK
  32. STERILE DILUENT FOR ALLERGENIC EXTRACT NOS [Suspect]
     Active Substance: ALBUMIN HUMAN OR GLYCERIN OR PHENOL
     Dosage: UNK
     Dates: start: 20231205
  33. FEXOFENADINE [Concomitant]
     Active Substance: FEXOFENADINE HYDROCHLORIDE
     Indication: Rhinitis allergic

REACTIONS (1)
  - Anaphylactic reaction [Recovered/Resolved]

NARRATIVE: CASE EVENT DATE: 20231121
